FAERS Safety Report 6122633-7 (Version None)
Quarter: 2009Q1

REPORT INFORMATION
  Report Type: 
  Country: None (occurrence: None)
  Receive Date: 20090318
  Receipt Date: 20090309
  Transmission Date: 20090719
  Serious: No
  Sender: FDA-Public Use
  Company Number: US-BAYER-200913741NA

PATIENT
  Age: 31 Year
  Sex: Female

DRUGS (1)
  1. MIRENA [Suspect]
     Indication: DRUG USE FOR UNKNOWN INDICATION
     Route: 015
     Dates: start: 20050720, end: 20090216

REACTIONS (1)
  - PREGNANCY WITH CONTRACEPTIVE DEVICE [None]
